FAERS Safety Report 4906343-7 (Version None)
Quarter: 2006Q1

REPORT INFORMATION
  Report Type: 
  Country: None (occurrence: None)
  Receive Date: 20060209
  Receipt Date: 20060126
  Transmission Date: 20060701
  Serious: Yes (Hospitalization)
  Sender: FDA-Public Use
  Company Number: US-JNJFOC-20060105657

PATIENT
  Age: 24 Year
  Sex: Female

DRUGS (3)
  1. TOPAMAX [Suspect]
     Route: 048
  2. FLUVOXAMINE MALEATE [Concomitant]
  3. ALBUTEROL [Concomitant]
     Indication: ASTHMA
     Dosage: LAST DOSE WAS ^GREATER THAN TEN DAYS PRIOR TO ADMISSION^.
     Route: 055

REACTIONS (2)
  - OVERDOSE [None]
  - SUICIDE ATTEMPT [None]
